FAERS Safety Report 4361006-4 (Version None)
Quarter: 2004Q2

REPORT INFORMATION
  Report Type: 
  Country: None (occurrence: None)
  Receive Date: 20040517
  Receipt Date: 20040510
  Transmission Date: 20050107
  Serious: Yes (Other)
  Sender: FDA-Public Use
  Company Number: 2004212443NO

PATIENT
  Sex: Male

DRUGS (1)
  1. DETRUSITOL [Suspect]
     Indication: POLLAKIURIA
     Dosage: UNK, UNK, ORAL
     Route: 048
     Dates: start: 19990101

REACTIONS (3)
  - ABDOMINAL NEOPLASM [None]
  - BLADDER DISORDER [None]
  - OEDEMA [None]
